FAERS Safety Report 18546539 (Version 1)
Quarter: 2020Q4

REPORT INFORMATION
  Report Type: Spontaneous
  Country: US (occurrence: US)
  Receive Date: 20201125
  Receipt Date: 20201125
  Transmission Date: 20210114
  Serious: No
  Sender: FDA-Public Use
  Company Number: US-PFIZER INC-2020461027

PATIENT
  Age: 76 Year
  Sex: Female
  Weight: 66.68 kg

DRUGS (2)
  1. AMLODIPINE BESILATE [Suspect]
     Active Substance: AMLODIPINE BESYLATE
     Indication: HYPERTENSION
     Dosage: 5 MG, 1X/DAY (TAKE ONCE DAILY BY MOUTH IN THE MORNING)
     Route: 048
  2. CARVEDILOL. [Concomitant]
     Active Substance: CARVEDILOL
     Indication: CARDIAC DISORDER
     Dosage: 12.5 MG, 2X/DAY (12.5MG; TAKE ONE TWICE DAILY BY MOUTH WITH FOOD)
     Route: 048

REACTIONS (6)
  - Abdominal pain [Unknown]
  - Nausea [Unknown]
  - Illness [Recovered/Resolved]
  - Joint swelling [Unknown]
  - Dysgeusia [Unknown]
  - Peripheral swelling [Unknown]
